FAERS Safety Report 7444864-6 (Version None)
Quarter: 2011Q2

REPORT INFORMATION
  Report Type: 
  Country: None (occurrence: None)
  Receive Date: 20110426
  Receipt Date: 20110426
  Transmission Date: 20111010
  Serious: Yes (Other)
  Sender: FDA-Public Use
  Company Number: None

PATIENT
  Sex: Female
  Weight: 49.8957 kg

DRUGS (3)
  1. CEFZIL [Concomitant]
  2. LEVAQUIN [Suspect]
     Indication: SINUS OPERATION
     Dosage: 750 MG 1X/DAY PO
     Route: 048
     Dates: start: 20110418, end: 20110426
  3. LEVAQUIN [Suspect]
     Indication: SINUSITIS
     Dosage: 750 MG 1X/DAY PO
     Route: 048
     Dates: start: 20110418, end: 20110426

REACTIONS (16)
  - NAUSEA [None]
  - ANXIETY [None]
  - NERVOUSNESS [None]
  - GAIT DISTURBANCE [None]
  - ABDOMINAL PAIN UPPER [None]
  - RESTLESSNESS [None]
  - FEELING HOT [None]
  - MUSCULAR WEAKNESS [None]
  - ASTHENIA [None]
  - HYPERHIDROSIS [None]
  - PAIN IN EXTREMITY [None]
  - HYPOAESTHESIA [None]
  - MUSCULOSKELETAL PAIN [None]
  - HEADACHE [None]
  - FATIGUE [None]
  - INSOMNIA [None]
